FAERS Safety Report 17010641 (Version 1)
Quarter: 2019Q4

REPORT INFORMATION
  Report Type: Spontaneous
  Country: CZ (occurrence: CZ)
  Receive Date: 20191108
  Receipt Date: 20191108
  Transmission Date: 20200122
  Serious: Yes (Other)
  Sender: FDA-Public Use
  Company Number: CZ-GE HEALTHCARE LIFE SCIENCES-2019CSU005714

PATIENT

DRUGS (14)
  1. OMNISCAN [Suspect]
     Active Substance: GADODIAMIDE
     Indication: GLIOBLASTOMA MULTIFORME
  2. MULTIHANCE [Suspect]
     Active Substance: GADOBENATE DIMEGLUMINE
     Indication: GLIOBLASTOMA MULTIFORME
  3. GADOLINIUM (UNSPECIFIED) [Suspect]
     Active Substance: GADOLINIUM
     Indication: GLIOBLASTOMA MULTIFORME
  4. OMNISCAN [Suspect]
     Active Substance: GADODIAMIDE
     Indication: MAGNETIC RESONANCE IMAGING
     Dosage: 70 ML TOTAL FOR 7 EXAMINATIONS
     Route: 065
  5. PROHANCE [Suspect]
     Active Substance: GADOTERIDOL
     Indication: GLIOBLASTOMA MULTIFORME
  6. DOTAREM [Suspect]
     Active Substance: GADOTERATE MEGLUMINE
     Indication: MAGNETIC RESONANCE IMAGING
     Dosage: 14 ML, SINGLE
     Route: 065
  7. GADOLINIUM (UNSPECIFIED) [Suspect]
     Active Substance: GADOLINIUM
     Indication: MAGNETIC RESONANCE IMAGING
     Dosage: 20 ML TOTAL FOR 2 EXAMINATIONS
     Route: 065
  8. MULTIHANCE [Suspect]
     Active Substance: GADOBENATE DIMEGLUMINE
     Indication: MAGNETIC RESONANCE IMAGING
     Dosage: 234 ML TOTAL FOR 23 EXAMINATIONS
     Route: 065
  9. MAGNEVIST [Suspect]
     Active Substance: GADOPENTETATE DIMEGLUMINE
     Indication: MAGNETIC RESONANCE IMAGING
     Dosage: 60 ML TOTAL FOR 6 EXAMINATIONS
     Route: 065
  10. GADOVIST [Suspect]
     Active Substance: GADOBUTROL
     Indication: GLIOBLASTOMA MULTIFORME
  11. GADOVIST [Suspect]
     Active Substance: GADOBUTROL
     Indication: MAGNETIC RESONANCE IMAGING
     Dosage: 105 ML TOTAL FOR 9 EXAMINATIONS
     Route: 065
  12. PROHANCE [Suspect]
     Active Substance: GADOTERIDOL
     Indication: MAGNETIC RESONANCE IMAGING
     Dosage: 59 ML TOTAL FOR 5 EXAMINATIONS
     Route: 065
  13. MAGNEVIST [Suspect]
     Active Substance: GADOPENTETATE DIMEGLUMINE
     Indication: GLIOBLASTOMA MULTIFORME
  14. DOTAREM [Suspect]
     Active Substance: GADOTERATE MEGLUMINE
     Indication: GLIOBLASTOMA MULTIFORME

REACTIONS (2)
  - No adverse event [Recovered/Resolved]
  - Magnetic resonance imaging brain abnormal [Recovered/Resolved]
